FAERS Safety Report 10090585 (Version 3)
Quarter: 2015Q4

REPORT INFORMATION
  Report Type: Spontaneous
  Country: US (occurrence: US)
  Receive Date: 20140421
  Receipt Date: 20151215
  Transmission Date: 20160304
  Serious: Yes (Death, Life-Threatening, Hospitalization, Other)
  Sender: FDA-Public Use
  Company Number: US-BAYER-2014-056765

PATIENT
  Age: 23 Year
  Sex: Female

DRUGS (14)
  1. DOPAMINE [Concomitant]
     Active Substance: DOPAMINE\DOPAMINE HYDROCHLORIDE
  2. ESOMEPRAZOLE [Concomitant]
     Active Substance: ESOMEPRAZOLE
  3. OXACILLIN [Concomitant]
     Active Substance: OXACILLIN SODIUM
     Route: 042
  4. MANNITOL. [Concomitant]
     Active Substance: MANNITOL
  5. PENTOBARBITAL SODIUM. [Concomitant]
     Active Substance: PENTOBARBITAL SODIUM
     Route: 042
  6. YASMIN [Suspect]
     Active Substance: DROSPIRENONE\ETHINYL ESTRADIOL
  7. ATROPIN [Concomitant]
     Active Substance: ATROPINE
  8. CHLORHEXIDINE [CHLORHEXIDINE] [Concomitant]
  9. NICARDIPINE [Concomitant]
     Active Substance: NICARDIPINE
     Route: 042
  10. FENTANYL. [Concomitant]
     Active Substance: FENTANYL
     Route: 042
  11. CISATRACURIUM. [Concomitant]
     Active Substance: CISATRACURIUM
     Route: 042
  12. DOCUSATE SODIUM W/SENNA [Concomitant]
  13. YAZ [Suspect]
     Active Substance: DROSPIRENONE\ETHINYL ESTRADIOL
     Route: 048
  14. NOREPINEPHRINE BITARTRATE. [Concomitant]
     Active Substance: NOREPINEPHRINE BITARTRATE
     Route: 042

REACTIONS (2)
  - Embolism arterial [None]
  - Subarachnoid haemorrhage [Fatal]

NARRATIVE: CASE EVENT DATE: 200904
